FAERS Safety Report 13373863 (Version 3)
Quarter: 2017Q3

REPORT INFORMATION
  Report Type: Spontaneous
  Country: US (occurrence: US)
  Receive Date: 20170327
  Receipt Date: 20170718
  Transmission Date: 20171127
  Serious: No
  Sender: FDA-Public Use
  Company Number: US-PFIZER INC-2017128133

PATIENT
  Age: 66 Year
  Sex: Female

DRUGS (8)
  1. IBRANCE [Suspect]
     Active Substance: PALBOCICLIB
     Dosage: 100 MG, CYCLIC (DAILY ON DAYS 1-21 OF 28)
     Route: 048
     Dates: start: 20170711
  2. LETROZOLE. [Suspect]
     Active Substance: LETROZOLE
     Dosage: UNK
     Dates: start: 201502, end: 201608
  3. LETROZOLE. [Suspect]
     Active Substance: LETROZOLE
     Dosage: UNK
     Dates: start: 201609, end: 201702
  4. FASLODEX [Concomitant]
     Active Substance: FULVESTRANT
     Dosage: UNK
     Dates: start: 20170325
  5. IBRANCE [Suspect]
     Active Substance: PALBOCICLIB
     Dosage: 125 MG, CYCLIC  (125 MG DAILY FOR 21 DAYS OFF 7 DAYS THEN REPEAT CYCLE)
     Dates: start: 20170324, end: 20170414
  6. IBRANCE [Suspect]
     Active Substance: PALBOCICLIB
     Indication: BREAST CANCER METASTATIC
     Dosage: UNK
     Dates: start: 201502, end: 201608
  7. IBRANCE [Suspect]
     Active Substance: PALBOCICLIB
     Dosage: 125 MG, CYCLIC  (125 MG DAILY FOR 21 DAYS OFF 7 DAYS THEN REPEAT CYCLE)
     Dates: start: 20170421
  8. FASLODEX [Concomitant]
     Active Substance: FULVESTRANT
     Dosage: UNK (EVERY 2 WEEKS MAR-APR2017, THEN EVERY 4 WEEKS)
     Dates: start: 201703, end: 201704

REACTIONS (1)
  - Neoplasm recurrence [Recovered/Resolved]
